FAERS Safety Report 23469604 (Version 2)
Quarter: 2024Q1

REPORT INFORMATION
  Report Type: Other
  Country: US (occurrence: None)
  Receive Date: 20240202
  Receipt Date: 20240212
  Transmission Date: 20240410
  Serious: Yes (Hospitalization)
  Sender: FDA-Public Use
  Company Number: US-ROCHE-3500387

PATIENT
  Age: 68 Year
  Sex: Female
  Weight: 49.032 kg

DRUGS (1)
  1. OCREVUS [Suspect]
     Active Substance: OCRELIZUMAB
     Indication: Relapsing multiple sclerosis
     Dosage: DATE OF TREATMENT: 06/MAR/2023, 16/MAR/2023, 11/SEP/2023
     Route: 042

REACTIONS (1)
  - Localised infection [Recovered/Resolved]
